FAERS Safety Report 14747571 (Version 22)
Quarter: 2020Q1

REPORT INFORMATION
  Report Type: Report from Study
  Country: US (occurrence: US)
  Receive Date: 20180411
  Receipt Date: 20200330
  Transmission Date: 20200409
  Serious: Yes (Death, Hospitalization, Other)
  Sender: FDA-Public Use
  Company Number: US-ACTELION-A-US2015-121661

PATIENT
  Age: 56 Year
  Sex: Female
  Weight: 66.67 kg

DRUGS (8)
  1. VELETRI [Suspect]
     Active Substance: EPOPROSTENOL
     Dosage: UNK
     Route: 042
  2. FLOLAN [Concomitant]
     Active Substance: EPOPROSTENOL SODIUM
  3. VELETRI [Suspect]
     Active Substance: EPOPROSTENOL
     Indication: PULMONARY ARTERIAL HYPERTENSION
     Dosage: 37.5 NG/KG, PER MIN
     Route: 042
  4. VELETRI [Suspect]
     Active Substance: EPOPROSTENOL
     Dosage: 37.5 NG/KG, PER MIN
     Route: 042
  5. VELETRI [Suspect]
     Active Substance: EPOPROSTENOL
     Dosage: UNK
     Route: 042
  6. VELETRI [Suspect]
     Active Substance: EPOPROSTENOL
     Dosage: 37.7 NG/KG, PER MIN
     Route: 042
     Dates: start: 20141217
  7. VELETRI [Suspect]
     Active Substance: EPOPROSTENOL
     Dosage: 37.5 NG/KG, PER MIN
     Route: 042
  8. COUMADIN [Concomitant]
     Active Substance: WARFARIN SODIUM

REACTIONS (32)
  - Anxiety [Unknown]
  - Nausea [Unknown]
  - Oxygen saturation decreased [Unknown]
  - Lethargy [Unknown]
  - Bronchitis [Not Recovered/Not Resolved]
  - Influenza [Unknown]
  - Dyspnoea exertional [Unknown]
  - Lung adenocarcinoma stage IV [Fatal]
  - Lung consolidation [Fatal]
  - Nasopharyngitis [Unknown]
  - Dizziness postural [Unknown]
  - Breast mass [Unknown]
  - Blood disorder [Unknown]
  - Pain in extremity [Unknown]
  - Dizziness [Unknown]
  - Flushing [Unknown]
  - Headache [Unknown]
  - Cardiac flutter [Unknown]
  - Hypersensitivity [Unknown]
  - Malaise [Unknown]
  - Atrial fibrillation [Unknown]
  - Pneumonia [Unknown]
  - Rash macular [Unknown]
  - Tonsillitis [Unknown]
  - Platelet disorder [Unknown]
  - Weight decreased [Unknown]
  - Febrile neutropenia [Unknown]
  - Haemoglobin decreased [Unknown]
  - Pain in jaw [Unknown]
  - Dyspnoea [Fatal]
  - Rash [Unknown]
  - Skin irritation [Unknown]

NARRATIVE: CASE EVENT DATE: 20180403
